FAERS Safety Report 10651671 (Version 1)
Quarter: 2014Q4

REPORT INFORMATION
  Report Type: Spontaneous
  Country: US (occurrence: None)
  Receive Date: 20141212
  Receipt Date: 20141212
  Transmission Date: 20150529
  Serious: Yes (Hospitalization)
  Sender: FDA-Public Use
  Company Number: None

PATIENT
  Age: 35 Year
  Sex: Female

DRUGS (18)
  1. CYMBALTA [Concomitant]
     Active Substance: DULOXETINE HYDROCHLORIDE
  2. FLEXERIL [Concomitant]
     Active Substance: CYCLOBENZAPRINE HYDROCHLORIDE
  3. NORCO [Concomitant]
     Active Substance: ACETAMINOPHEN\HYDROCODONE BITARTRATE
  4. FOSAMAX [Concomitant]
     Active Substance: ALENDRONATE SODIUM
  5. ALBUTEROL INHALER [Concomitant]
     Active Substance: ALBUTEROL
  6. MORPHINE [Concomitant]
     Active Substance: MORPHINE
  7. VOLTAREN [Concomitant]
     Active Substance: DICLOFENAC SODIUM
  8. NEBULIZER [Concomitant]
     Active Substance: UNSPECIFIED INGREDIENT
  9. FLONASE [Concomitant]
     Active Substance: FLUTICASONE PROPIONATE
  10. BROMOCRIPTINE [Concomitant]
     Active Substance: BROMOCRIPTINE
  11. ADVAIR HFA [Concomitant]
     Active Substance: FLUTICASONE PROPIONATE\SALMETEROL XINAFOATE
  12. TRAZODONE [Concomitant]
     Active Substance: TRAZODONE HYDROCHLORIDE
  13. NEXIUM [Concomitant]
     Active Substance: ESOMEPRAZOLE MAGNESIUM
  14. METHOTREXATE [Concomitant]
     Active Substance: METHOTREXATE
  15. HUMIRA [Suspect]
     Active Substance: ADALIMUMAB
     Indication: CROHN^S DISEASE
     Dosage: 2+ YEARS 40MG EVERY WEEK SUBCUTANEOUS
     Route: 058
  16. CALCIUM CITRATE [Concomitant]
     Active Substance: CALCIUM CITRATE
  17. FOLIC ACID. [Concomitant]
     Active Substance: FOLIC ACID
  18. PRENATAL VITAMIN [Concomitant]
     Active Substance: VITAMINS

REACTIONS (1)
  - Drug dose omission [None]
